FAERS Safety Report 14263436 (Version 1)
Quarter: 2017Q4

REPORT INFORMATION
  Report Type: Spontaneous
  Country: AT (occurrence: AT)
  Receive Date: 20171208
  Receipt Date: 20171208
  Transmission Date: 20180321
  Serious: Yes (Other)
  Sender: FDA-Public Use
  Company Number: AT-JNJFOC-20171203806

PATIENT
  Age: 52 Year
  Sex: Male

DRUGS (5)
  1. STELARA [Suspect]
     Active Substance: USTEKINUMAB
     Indication: PITYRIASIS RUBRA PILARIS
     Route: 058
  2. WARFARIN [Concomitant]
     Active Substance: WARFARIN
     Indication: DEEP VEIN THROMBOSIS
     Route: 065
  3. STELARA [Suspect]
     Active Substance: USTEKINUMAB
     Indication: PITYRIASIS RUBRA PILARIS
     Route: 058
  4. STELARA [Suspect]
     Active Substance: USTEKINUMAB
     Indication: PITYRIASIS RUBRA PILARIS
     Route: 058
  5. STELARA [Suspect]
     Active Substance: USTEKINUMAB
     Indication: PITYRIASIS RUBRA PILARIS
     Route: 058
     Dates: start: 201407

REACTIONS (4)
  - Drug effect decreased [Unknown]
  - Deep vein thrombosis [Unknown]
  - Product use in unapproved indication [Unknown]
  - Off label use [Unknown]
